FAERS Safety Report 20977298 (Version 1)
Quarter: 2022Q2

REPORT INFORMATION
  Report Type: Spontaneous
  Country: HU (occurrence: HU)
  Receive Date: 20220617
  Receipt Date: 20220617
  Transmission Date: 20220720
  Serious: Yes (Other)
  Sender: FDA-Public Use
  Company Number: HU-TEVA-2022-HU-2046526

PATIENT
  Age: 41 Year
  Sex: Female

DRUGS (3)
  1. GOSERELIN [Suspect]
     Active Substance: GOSERELIN
     Indication: Hepatic neoplasm
     Route: 065
     Dates: start: 202001
  2. LETROZOLE [Suspect]
     Active Substance: LETROZOLE
     Indication: Hepatic neoplasm
     Route: 065
     Dates: start: 202001
  3. RIBOCICLIB [Suspect]
     Active Substance: RIBOCICLIB
     Indication: Hepatic neoplasm
     Route: 065
     Dates: start: 202001

REACTIONS (1)
  - Neutropenia [Recovered/Resolved]

NARRATIVE: CASE EVENT DATE: 20200101
